FAERS Safety Report 6094091-2 (Version None)
Quarter: 2009Q1

REPORT INFORMATION
  Report Type: 
  Country: None (occurrence: None)
  Receive Date: 20090224
  Receipt Date: 20090224
  Transmission Date: 20090719
  Serious: Yes (Hospitalization)
  Sender: FDA-Public Use
  Company Number: None

PATIENT
  Age: 16 Year
  Sex: Male
  Weight: 74.8435 kg

DRUGS (2)
  1. METOCLOPRAMIDE [Suspect]
     Indication: ABDOMINAL PAIN UPPER
     Dosage: 1 TABLET 20 MINS BEFORE MEALS 1 TABLET AT BEDTIM
     Dates: start: 20090219, end: 20090222
  2. METOCLOPRAMIDE [Suspect]
     Indication: DEHYDRATION
     Dosage: 1 TABLET 20 MINS BEFORE MEALS 1 TABLET AT BEDTIM
     Dates: start: 20090219, end: 20090222

REACTIONS (8)
  - DEHYDRATION [None]
  - DYSKINESIA [None]
  - DYSPEPSIA [None]
  - EMOTIONAL DISTRESS [None]
  - FEELING ABNORMAL [None]
  - FEELING HOT [None]
  - HEADACHE [None]
  - JAW DISORDER [None]
